FAERS Safety Report 7233623-5 (Version None)
Quarter: 2011Q1

REPORT INFORMATION
  Report Type: 
  Country: None (occurrence: None)
  Receive Date: 20110119
  Receipt Date: 20110111
  Transmission Date: 20110831
  Serious: Yes (Life-Threatening, Hospitalization, Disabling, Other)
  Sender: FDA-Public Use
  Company Number: JP-MERCK-1012USA04079

PATIENT
  Age: 78 Year
  Sex: Male
  Weight: 57 kg

DRUGS (6)
  1. ACTOS [Concomitant]
     Indication: DIABETES MELLITUS
     Route: 048
     Dates: start: 20080617, end: 20100319
  2. SEIBULE [Concomitant]
     Indication: DIABETES MELLITUS
     Route: 048
     Dates: start: 20090728, end: 20100319
  3. JANUVIA [Suspect]
     Indication: DIABETES MELLITUS
     Route: 048
     Dates: start: 20100319
  4. ARICEPT [Concomitant]
     Indication: DEMENTIA
     Route: 048
     Dates: start: 20100316
  5. MELBIN [Concomitant]
     Indication: DIABETES MELLITUS
     Route: 048
     Dates: start: 20090630, end: 20100319
  6. AMARYL [Concomitant]
     Indication: DIABETES MELLITUS
     Route: 048
     Dates: start: 20050601

REACTIONS (1)
  - AMYOTROPHIC LATERAL SCLEROSIS [None]
